FAERS Safety Report 7742831-6 (Version None)
Quarter: 2011Q3

REPORT INFORMATION
  Report Type: 
  Country: None (occurrence: None)
  Receive Date: 20110908
  Receipt Date: 20110908
  Transmission Date: 20111222
  Serious: Yes (Other)
  Sender: FDA-Public Use
  Company Number: None

PATIENT
  Sex: Male
  Weight: 53.978 kg

DRUGS (1)
  1. DOCETAXEL [Suspect]
     Indication: LUNG NEOPLASM MALIGNANT
     Dosage: 60MG Q2WKS IV
     Route: 042
     Dates: start: 20110907

REACTIONS (6)
  - ERYTHEMA [None]
  - HEART RATE INCREASED [None]
  - INFUSION RELATED REACTION [None]
  - ABDOMINAL DISCOMFORT [None]
  - CHEST PAIN [None]
  - BLOOD PRESSURE SYSTOLIC INCREASED [None]
